FAERS Safety Report 23151049 (Version 3)
Quarter: 2024Q1

REPORT INFORMATION
  Report Type: Spontaneous
  Country: AT (occurrence: AT)
  Receive Date: 20231106
  Receipt Date: 20240111
  Transmission Date: 20240410
  Serious: Yes (Other)
  Sender: FDA-Public Use
  Company Number: AT-BIOVITRUM-2023-AT-017414

PATIENT

DRUGS (2)
  1. PEGCETACOPLAN [Suspect]
     Active Substance: PEGCETACOPLAN
     Indication: Anaemia
     Dosage: 1080 MILLIGRAM, TWICE WEEKLY
  2. PEGCETACOPLAN [Suspect]
     Active Substance: PEGCETACOPLAN
     Indication: Paroxysmal nocturnal haemoglobinuria
     Dosage: 1080 MILLIGRAM Q 3 DAYS

REACTIONS (3)
  - Breakthrough haemolysis [Unknown]
  - Renal impairment [Unknown]
  - Infection [Unknown]
